FAERS Safety Report 13052725 (Version 1)
Quarter: 2016Q4

REPORT INFORMATION
  Report Type: Spontaneous
  Country: US (occurrence: US)
  Receive Date: 20161221
  Receipt Date: 20161221
  Transmission Date: 20170207
  Serious: No
  Sender: FDA-Public Use
  Company Number: US-GE HEALTHCARE MEDICAL DIAGNOSTICS-OSCN-PR-1612S-0152

PATIENT
  Age: 45 Year
  Sex: Female
  Weight: 86.26 kg

DRUGS (3)
  1. OMNISCAN [Suspect]
     Active Substance: GADODIAMIDE
     Indication: DIAGNOSTIC PROCEDURE
  2. OMNISCAN [Suspect]
     Active Substance: GADODIAMIDE
     Indication: LIVER DISORDER
     Route: 042
     Dates: start: 20161205, end: 20161205
  3. OMNISCAN [Suspect]
     Active Substance: GADODIAMIDE
     Indication: SARCOIDOSIS

REACTIONS (4)
  - Head discomfort [Unknown]
  - Headache [Unknown]
  - Eye pruritus [Unknown]
  - Dizziness [Unknown]

NARRATIVE: CASE EVENT DATE: 20161205
